FAERS Safety Report 9396082 (Version 3)
Quarter: 2014Q1

REPORT INFORMATION
  Report Type: Spontaneous
  Country: PL (occurrence: PL)
  Receive Date: 20130711
  Receipt Date: 20140120
  Transmission Date: 20141002
  Serious: Yes (Hospitalization)
  Sender: FDA-Public Use
  Company Number: PL-JNJFOC-20130417762

PATIENT
  Age: 26 Year
  Sex: Male
  Weight: 130 kg

DRUGS (2)
  1. RISPOLEPT CONSTA [Suspect]
     Indication: SCHIZOPHRENIA, PARANOID TYPE
     Dosage: 4 YEARS AGO
     Route: 030
     Dates: start: 2009
  2. RISPOLEPT CONSTA [Suspect]
     Indication: SCHIZOPHRENIA, PARANOID TYPE
     Dosage: 2 X 25MG ; 4 X 37.5MG
     Route: 030
     Dates: start: 20130427

REACTIONS (3)
  - Intentional overdose [Recovered/Resolved]
  - Mental disorder [Recovered/Resolved]
  - Aggression [Recovered/Resolved]
